FAERS Safety Report 5008486-9 (Version None)
Quarter: 2006Q2

REPORT INFORMATION
  Report Type: 
  Country: None (occurrence: None)
  Receive Date: 20060518
  Receipt Date: 20060503
  Transmission Date: 20061013
  Serious: Yes (Hospitalization)
  Sender: FDA-Public Use
  Company Number: CIP06000369

PATIENT
  Age: 76 Year
  Sex: Female

DRUGS (4)
  1. ACTONEL [Suspect]
     Indication: OSTEOPOROSIS PROPHYLAXIS
     Dosage: 35 MG ONCE WEEKLY, ORAL
     Route: 048
     Dates: start: 20041025
  2. CALCIUM (CALCIUM) CHEWABLE TABLET [Suspect]
     Indication: OSTEOPOROSIS PROPHYLAXIS
     Dosage: 1000 MG DAILY, ORAL
     Route: 048
     Dates: start: 20041025
  3. VITAMIN D [Suspect]
     Indication: OSTEOPOROSIS PROPHYLAXIS
     Dosage: 400 IU DAILY, ORAL
     Route: 048
     Dates: start: 20041025
  4. ARIMIDEX [Suspect]
     Indication: BREAST CANCER
     Dosage: 1 MG DAILY, ORAL
     Route: 048
     Dates: start: 20041025

REACTIONS (5)
  - ABDOMINAL PAIN LOWER [None]
  - ADHESION [None]
  - COLONIC ATONY [None]
  - CONDITION AGGRAVATED [None]
  - CONSTIPATION [None]
